FAERS Safety Report 25676758 (Version 1)
Quarter: 2025Q3

REPORT INFORMATION
  Report Type: Spontaneous
  Country: CN (occurrence: CN)
  Receive Date: 20250813
  Receipt Date: 20250813
  Transmission Date: 20251020
  Serious: Yes (Hospitalization)
  Sender: NOVO NORDISK
  Company Number: CN-NOVOPROD-1464545

PATIENT
  Age: 38 Year
  Sex: Female
  Weight: 91.4 kg

DRUGS (5)
  1. METFORMIN HYDROCHLORIDE [Concomitant]
     Active Substance: METFORMIN HYDROCHLORIDE
     Indication: Type 2 diabetes mellitus
     Dosage: 0.5 G, TID
     Route: 048
     Dates: start: 20240813
  2. MOSAPRIDE CITRATE CHEMIPHAR [Concomitant]
     Indication: Constipation
  3. MOSAPRIDE CITRATE CHEMIPHAR [Concomitant]
     Indication: Nausea
     Dosage: 5 MG, TID
     Route: 048
     Dates: start: 20250528, end: 20250530
  4. OZEMPIC [Suspect]
     Active Substance: SEMAGLUTIDE
     Dates: start: 20250429, end: 20250603
  5. OZEMPIC [Suspect]
     Active Substance: SEMAGLUTIDE
     Indication: Type 2 diabetes mellitus
     Dosage: 0.5 MG, QW
     Dates: start: 20250429, end: 20250528

REACTIONS (1)
  - Appendiceal abscess [Recovered/Resolved]

NARRATIVE: CASE EVENT DATE: 20250530
